FAERS Safety Report 20631337 (Version 4)
Quarter: 2023Q1

REPORT INFORMATION
  Report Type: Report from Study
  Country: DE (occurrence: DE)
  Receive Date: 20220324
  Receipt Date: 20230216
  Transmission Date: 20230417
  Serious: Yes (Other)
  Sender: FDA-Public Use
  Company Number: DE-SUN PHARMACEUTICAL INDUSTRIES LTD-2022RR-330246

PATIENT
  Age: 82 Year
  Sex: Female

DRUGS (12)
  1. SONIDEGIB [Suspect]
     Active Substance: SONIDEGIB
     Indication: Basal cell carcinoma
     Dosage: 200 MILLIGRAM, DAILY
     Route: 048
     Dates: start: 20201228
  2. AMINOPHYLLINE\QUININE SULFATE [Concomitant]
     Active Substance: AMINOPHYLLINE\QUININE SULFATE
     Indication: Prophylaxis
     Dosage: 200 MILLIGRAM, UNK
     Route: 048
     Dates: start: 202104, end: 202107
  3. AMINOPHYLLINE\QUININE SULFATE [Concomitant]
     Active Substance: AMINOPHYLLINE\QUININE SULFATE
     Indication: Pre-existing disease
     Dosage: 200 MILLIGRAM, DAILY
     Route: 048
     Dates: start: 202107, end: 202108
  4. AMINOPHYLLINE\QUININE SULFATE [Concomitant]
     Active Substance: AMINOPHYLLINE\QUININE SULFATE
     Dosage: 200 MILLIGRAM, UNK
     Route: 048
     Dates: end: 20210404
  5. AMINOPHYLLINE\QUININE SULFATE [Concomitant]
     Active Substance: AMINOPHYLLINE\QUININE SULFATE
     Dosage: 200 MILLIGRAM, DAILY TWICE DAILY
     Route: 048
  6. AMINOPHYLLINE\QUININE SULFATE [Concomitant]
     Active Substance: AMINOPHYLLINE\QUININE SULFATE
     Dosage: 200 MILLIGRAM,
     Route: 048
  7. BLACK COHOSH [Concomitant]
     Active Substance: BLACK COHOSH
     Indication: Pre-existing disease
     Dosage: UNK, BID
     Route: 048
     Dates: start: 202010
  8. ASPIRIN [Concomitant]
     Active Substance: ASPIRIN
     Indication: Pre-existing disease
     Dosage: 100 MILLIGRAM, DAILY
     Route: 048
     Dates: start: 2018
  9. ATORVASTATIN [Concomitant]
     Active Substance: ATORVASTATIN
     Indication: Pre-existing disease
     Dosage: 20 MILLIGRAM, DAILY
     Route: 048
     Dates: start: 2018
  10. CANDESARTAN [Concomitant]
     Active Substance: CANDESARTAN
     Indication: Pre-existing disease
     Dosage: 8 MILLIGRAM, DAILY
     Route: 048
     Dates: start: 2018
  11. BISOPROLOL [Concomitant]
     Active Substance: BISOPROLOL
     Indication: Pre-existing disease
     Dosage: 2.5 MILLIGRAM, DAILY
     Route: 048
     Dates: start: 2018
  12. ESOMEPRAZOLE [Concomitant]
     Active Substance: ESOMEPRAZOLE
     Indication: Prophylaxis
     Dosage: 40 MILLIGRAM, DAILY
     Route: 048
     Dates: start: 2015

REACTIONS (3)
  - Haemorrhage [Recovered/Resolved]
  - Hypertension [Not Recovered/Not Resolved]
  - Alopecia [Not Recovered/Not Resolved]

NARRATIVE: CASE EVENT DATE: 20211025
